FAERS Safety Report 6204292-8 (Version None)
Quarter: 2009Q2

REPORT INFORMATION
  Report Type: 
  Country: None (occurrence: None)
  Receive Date: 20090527
  Receipt Date: 20090518
  Transmission Date: 20091009
  Serious: Yes (Death)
  Sender: FDA-Public Use
  Company Number: PT-PFIZER INC-2007002773

PATIENT
  Age: 14 Year

DRUGS (5)
  1. VORICONAZOLE [Suspect]
     Indication: ANTIFUNGAL PROPHYLAXIS
     Dosage: UNK
     Dates: start: 20060904, end: 20061216
  2. CYTARABINE [Concomitant]
     Dosage: UNK
     Route: 042
     Dates: start: 20061219, end: 20061223
  3. FLUDARABINE PHOSPHATE [Concomitant]
     Dosage: UNK
     Route: 042
     Dates: start: 20061219, end: 20061223
  4. IDARUBICIN HCL [Concomitant]
     Dosage: UNK
     Route: 042
     Dates: start: 20061220, end: 20061223
  5. NEUPOGEN [Concomitant]
     Route: 058
     Dates: start: 20061219

REACTIONS (1)
  - ACUTE MYELOID LEUKAEMIA RECURRENT [None]
